FAERS Safety Report 14506646 (Version 2)
Quarter: 2018Q1

REPORT INFORMATION
  Report Type: Spontaneous
  Country: US (occurrence: US)
  Receive Date: 20180208
  Receipt Date: 20180208
  Transmission Date: 20180509
  Serious: Yes (Hospitalization)
  Sender: FDA-Public Use
  Company Number: US-GILEAD-2018-0319169

PATIENT
  Age: 87 Year
  Sex: Female

DRUGS (1)
  1. AMBRISENTAN [Suspect]
     Active Substance: AMBRISENTAN
     Indication: PRODUCT USED FOR UNKNOWN INDICATION
     Dosage: 1 DF, QD
     Route: 065
     Dates: start: 2016

REACTIONS (9)
  - Dizziness [Not Recovered/Not Resolved]
  - Asthenia [Unknown]
  - Confusional state [Unknown]
  - Inappropriate schedule of drug administration [Recovered/Resolved]
  - Orthostatic hypotension [Not Recovered/Not Resolved]
  - Lethargy [Unknown]
  - Blood pressure fluctuation [Unknown]
  - Viral infection [Unknown]
  - Malaise [Unknown]

NARRATIVE: CASE EVENT DATE: 20180123
